FAERS Safety Report 9577667 (Version 2)
Quarter: 2013Q4

REPORT INFORMATION
  Report Type: Spontaneous
  Country: US (occurrence: US)
  Receive Date: 20131001
  Receipt Date: 20131001
  Transmission Date: 20140711
  Serious: No
  Sender: FDA-Public Use
  Company Number: US-AMGEN-USASP2013008189

PATIENT
  Age: 66 Year
  Sex: Female
  Weight: 88.89 kg

DRUGS (18)
  1. ENBREL [Suspect]
     Indication: RHEUMATOID ARTHRITIS
     Dosage: 50 MG, QWK
     Dates: start: 20120705
  2. IMURAN                             /00001501/ [Concomitant]
     Dosage: INCREASE ON 5/JUL/2012
  3. CELEXA                             /00582602/ [Concomitant]
     Dosage: 20 MG, QD
  4. SLOW FE [Concomitant]
     Dosage: 160 MG, QD (FOR 30 DAYS)
     Route: 048
  5. AMRIX [Concomitant]
     Dosage: 30 MG, QD
  6. SYNTHROID [Concomitant]
     Dosage: 200 MUG, QD
  7. PLAVIX [Concomitant]
     Dosage: 75 MG, QD
  8. TRAZODONE [Concomitant]
     Dosage: 100 MG, QD (AT BED TIME)
  9. LIPITOR [Concomitant]
     Dosage: 80 MG, QD
  10. TRICOR                             /00090101/ [Concomitant]
     Dosage: 145 MG, QD
  11. PERCOCET-5 [Concomitant]
     Dosage: (325-10 MG) ONE EACH EVERY SIX HOURS.
  12. ASPIRIN [Concomitant]
     Dosage: 81 MG (TABLET) 325 MG ONE DAILY
  13. HYZAAR [Concomitant]
     Dosage: UNK 12.5MG -50MG
  14. RELAFEN [Concomitant]
     Dosage: 500 MG (2 TABLETS) QD
  15. MEDROL                             /00049601/ [Concomitant]
     Dosage: 4 MG, AS NEEDED
  16. FOLIC ACID [Concomitant]
     Dosage: 1 MG, QD
  17. ACTONEL [Concomitant]
     Dosage: 150 MG 1 TABLET ONCE A MONTH
  18. XANAX [Concomitant]
     Dosage: 0.5 MG, UNK
     Route: 048

REACTIONS (8)
  - Rash [Not Recovered/Not Resolved]
  - Arthralgia [Not Recovered/Not Resolved]
  - Dyspnoea [Recovering/Resolving]
  - Joint stiffness [Not Recovered/Not Resolved]
  - Joint swelling [Not Recovered/Not Resolved]
  - Osteoarthritis [Not Recovered/Not Resolved]
  - Rheumatoid arthritis [Not Recovered/Not Resolved]
  - Herpes zoster [Recovered/Resolved]
